FAERS Safety Report 24434322 (Version 1)
Quarter: 2024Q4

REPORT INFORMATION
  Report Type: Spontaneous
  Country: US (occurrence: US)
  Receive Date: 20241014
  Receipt Date: 20241014
  Transmission Date: 20250115
  Serious: No
  Sender: MERCK
  Company Number: US-009507513-2409USA008299

PATIENT
  Age: 80 Year
  Sex: Male

DRUGS (1)
  1. KEYTRUDA [Suspect]
     Active Substance: PEMBROLIZUMAB
     Indication: Metastatic malignant melanoma
     Dosage: 600 MILLIGRAM, EVERY 4 WEEKS
     Dates: start: 20240809

REACTIONS (7)
  - Brain fog [Unknown]
  - Lethargy [Unknown]
  - Asthenia [Unknown]
  - Dyspnoea [Unknown]
  - Arthralgia [Unknown]
  - Constipation [Unknown]
  - Incorrect dosage administered [Unknown]

NARRATIVE: CASE EVENT DATE: 20240809
